FAERS Safety Report 8883665 (Version 6)
Quarter: 2013Q1

REPORT INFORMATION
  Report Type: Spontaneous
  Country: US (occurrence: US)
  Receive Date: 20121102
  Receipt Date: 20130220
  Transmission Date: 20140127
  Serious: Yes (Hospitalization, Disabling, Other)
  Sender: FDA-Public Use
  Company Number: US-009507513-1210USA010280

PATIENT
  Sex: Female
  Weight: 111.11 kg

DRUGS (7)
  1. FOSAMAX [Suspect]
     Indication: OSTEOPOROSIS
     Dosage: 70 MG, UNK
     Route: 048
     Dates: start: 200109, end: 200808
  2. FOSAMAX [Suspect]
     Indication: OSTEOPENIA
  3. FOSAMAX [Suspect]
     Indication: OSTEOPOROSIS
     Dosage: 70 MG, QW
     Route: 048
     Dates: start: 200808, end: 200904
  4. FOSAMAX [Suspect]
     Indication: OSTEOPENIA
  5. ACTONEL [Suspect]
     Indication: OSTEOPOROSIS
     Dosage: 35 MG, UNK
     Route: 048
     Dates: start: 200904
  6. ACTONEL [Suspect]
     Indication: OSTEOPENIA
     Dosage: 150 MG, QM
     Route: 048
     Dates: end: 201206
  7. CITRACAL + D [Concomitant]
     Dosage: 2 TABS QD
     Dates: start: 1995, end: 2010

REACTIONS (24)
  - Pyrexia [Recovered/Resolved]
  - Back pain [Unknown]
  - Pain in extremity [Unknown]
  - Gastrooesophageal reflux disease [Unknown]
  - Femur fracture [Not Recovered/Not Resolved]
  - Femur fracture [Not Recovered/Not Resolved]
  - Renal failure [Unknown]
  - Urinary tract infection [Unknown]
  - Intramedullary rod insertion [Unknown]
  - Multiple fractures [Not Recovered/Not Resolved]
  - Low turnover osteopathy [Not Recovered/Not Resolved]
  - Osteoporosis [Not Recovered/Not Resolved]
  - Hypertension [Not Recovered/Not Resolved]
  - Diabetes mellitus [Not Recovered/Not Resolved]
  - Arthroscopic surgery [Unknown]
  - Gingival operation [Unknown]
  - Periodontal operation [Unknown]
  - Oral surgery [Unknown]
  - Tooth extraction [Unknown]
  - Spinal compression fracture [Unknown]
  - Spinal osteoarthritis [Unknown]
  - Hypercholesterolaemia [Unknown]
  - Fall [Unknown]
  - Leukocytosis [Not Recovered/Not Resolved]
